FAERS Safety Report 9638387 (Version 2)
Quarter: 2013Q4

REPORT INFORMATION
  Report Type: Report from Study
  Country: JP (occurrence: JP)
  Receive Date: 20131022
  Receipt Date: 20131022
  Transmission Date: 20140711
  Serious: Yes (Life-Threatening, Other)
  Sender: FDA-Public Use
  Company Number: JP-TAKEDA-TCI2013A04125

PATIENT
  Age: 77 Year
  Sex: Male
  Weight: 56 kg

DRUGS (12)
  1. NESINA TABLETS 25MG [Suspect]
     Indication: TYPE 2 DIABETES MELLITUS
     Dosage: 25 MG, QD
     Route: 048
     Dates: start: 20111210
  2. UNISIA COMBINATION TABLETS HD [Concomitant]
     Dosage: 1 UNK, QD
     Route: 048
     Dates: start: 20111210
  3. BLOPRESS [Concomitant]
     Route: 048
     Dates: end: 20111209
  4. BLOPRESS [Concomitant]
     Route: 048
  5. BLOPRESS [Concomitant]
     Route: 048
  6. BAYASPIRIN [Concomitant]
     Route: 048
  7. BAYASPIRIN [Concomitant]
     Route: 048
  8. NORVASC OD [Concomitant]
     Route: 048
     Dates: end: 20111209
  9. NORVASC OD [Concomitant]
     Route: 048
  10. CRESTOR [Concomitant]
     Route: 048
  11. CRESTOR [Concomitant]
     Route: 048
  12. NORVASC OD [Concomitant]
     Route: 048

REACTIONS (1)
  - Gastric cancer [Recovering/Resolving]
